FAERS Safety Report 6998239-4 (Version None)
Quarter: 2010Q3

REPORT INFORMATION
  Report Type: 
  Country: None (occurrence: None)
  Receive Date: 20100920
  Receipt Date: 20100527
  Transmission Date: 20110219
  Serious: Yes (Other)
  Sender: FDA-Public Use
  Company Number: US-ASTRAZENECA-2008UW10380

PATIENT
  Age: 41 Year
  Sex: Female
  Weight: 160.1 kg

DRUGS (12)
  1. SEROQUEL [Suspect]
     Indication: SCHIZOPHRENIA
     Route: 048
     Dates: start: 20040318
  2. SEROQUEL [Suspect]
     Indication: DEPRESSION
     Route: 048
     Dates: start: 20040318
  3. SEROQUEL [Suspect]
     Indication: BIPOLAR DISORDER
     Route: 048
     Dates: start: 20040318
  4. SEROQUEL [Suspect]
     Dosage: 25 MG, 200 MG
     Route: 048
     Dates: start: 20040301, end: 20070401
  5. SEROQUEL [Suspect]
     Dosage: 25 MG, 200 MG
     Route: 048
     Dates: start: 20040301, end: 20070401
  6. SEROQUEL [Suspect]
     Dosage: 25 MG, 200 MG
     Route: 048
     Dates: start: 20040301, end: 20070401
  7. SEROQUEL [Suspect]
     Route: 048
     Dates: start: 20050121
  8. SEROQUEL [Suspect]
     Route: 048
     Dates: start: 20050121
  9. SEROQUEL [Suspect]
     Route: 048
     Dates: start: 20050121
  10. ABILIFY [Concomitant]
     Dosage: 15 MG, 30 MG
     Dates: start: 20031101, end: 20060501
  11. ABILIFY [Concomitant]
     Dosage: 15 MG, 30 MG
     Dates: start: 20080101
  12. HALDOL [Concomitant]
     Dates: start: 20071101

REACTIONS (3)
  - CARDIAC FAILURE CONGESTIVE [None]
  - DIABETES MELLITUS [None]
  - TYPE 2 DIABETES MELLITUS [None]
